FAERS Safety Report 8341576-1 (Version None)
Quarter: 2012Q2

REPORT INFORMATION
  Report Type: 
  Country: None (occurrence: None)
  Receive Date: 20120507
  Receipt Date: 20120503
  Transmission Date: 20120825
  Serious: No
  Sender: FDA-Public Use
  Company Number: US-PFIZER INC-2012109324

PATIENT
  Sex: Male
  Weight: 91 kg

DRUGS (1)
  1. NARDIL [Suspect]
     Indication: DEPRESSION
     Dosage: 45 MG, 3X/DAY
     Route: 048
     Dates: start: 20120502

REACTIONS (5)
  - FEELING ABNORMAL [None]
  - NAUSEA [None]
  - HEADACHE [None]
  - ANXIETY [None]
  - DISORIENTATION [None]
